FAERS Safety Report 8125506-3 (Version None)
Quarter: 2012Q1

REPORT INFORMATION
  Report Type: 
  Country: None (occurrence: None)
  Receive Date: 20120209
  Receipt Date: 20120202
  Transmission Date: 20120608
  Serious: Yes (Life-Threatening)
  Sender: FDA-Public Use
  Company Number: IT-CELGENEUS-083-21660-12020436

PATIENT
  Sex: Female

DRUGS (5)
  1. TRIMETON [Concomitant]
     Route: 065
  2. ABRAXANE [Suspect]
     Indication: BREAST CANCER
     Dosage: 90 MILLIGRAM/SQ. METER
     Route: 041
     Dates: start: 20120127, end: 20120127
  3. DEXAMETHASONE SODIUM PHOSPHATE [Concomitant]
     Route: 065
  4. ZANTAC [Concomitant]
     Route: 065
  5. NAVOBAN [Concomitant]
     Route: 065

REACTIONS (5)
  - ASPHYXIA [None]
  - LOSS OF CONSCIOUSNESS [None]
  - RASH [None]
  - NAUSEA [None]
  - HYPERTENSION [None]
